FAERS Safety Report 8484801-9 (Version None)
Quarter: 2012Q3

REPORT INFORMATION
  Report Type: 
  Country: None (occurrence: None)
  Receive Date: 20120703
  Receipt Date: 20120625
  Transmission Date: 20120928
  Serious: Yes (Other)
  Sender: FDA-Public Use
  Company Number: US-BAYER-2012-017448

PATIENT
  Age: 38 Year
  Sex: Female
  Weight: 62.585 kg

DRUGS (12)
  1. VITALITY MULTIVITAMIN [Concomitant]
     Dosage: UNK
     Dates: start: 20080101
  2. CELEXA [Concomitant]
     Dosage: UNK
     Dates: start: 20110801
  3. EVENING PRIMROSE OIL [Concomitant]
     Dosage: UNK
     Dates: start: 20100101
  4. DROSPIRENONE AND ETHINYL ESTRADIOL [Suspect]
     Indication: BREAST CYST
     Dosage: UNK
     Route: 048
     Dates: start: 20100407, end: 20110114
  5. SUMATRIPTAN [Concomitant]
     Dosage: UNK
     Dates: start: 20030101
  6. FIORICET [Concomitant]
     Dosage: UNK
     Dates: start: 20030101
  7. LOVAZA [Concomitant]
     Dosage: UNK
     Dates: start: 20100101
  8. RELPAX [Concomitant]
     Dosage: UNK
     Dates: start: 20060101
  9. CITALOPRAM HYDROBROMIDE [Concomitant]
     Dosage: UNK
     Dates: start: 20060101
  10. CALCIUM COMPLETE [Concomitant]
     Dosage: UNK
     Dates: start: 20080101
  11. VITAMIN D [Concomitant]
     Dosage: UNK
     Dates: start: 20100101
  12. ASCORBIC ACID [Concomitant]
     Dosage: UNK
     Dates: start: 20100101

REACTIONS (12)
  - PAIN [None]
  - CHEST PAIN [None]
  - COUGH [None]
  - DEPRESSION [None]
  - PULMONARY EMBOLISM [None]
  - DYSPNOEA [None]
  - TENSION HEADACHE [None]
  - EMOTIONAL DISTRESS [None]
  - ANXIETY [None]
  - GENERAL PHYSICAL HEALTH DETERIORATION [None]
  - INSOMNIA [None]
  - STRESS [None]
